FAERS Safety Report 4586105-3 (Version None)
Quarter: 2005Q1

REPORT INFORMATION
  Report Type: 
  Country: None (occurrence: None)
  Receive Date: 20050125
  Receipt Date: 20041015
  Transmission Date: 20050727
  Serious: No
  Sender: FDA-Public Use
  Company Number: USA041081289

PATIENT
  Age: 74 Year
  Sex: Female

DRUGS (8)
  1. FORTEO [Suspect]
     Indication: OSTEOPOROSIS
     Dates: start: 20040825
  2. WARFARIN [Concomitant]
  3. PREDNISONE [Concomitant]
  4. DITROPAN [Concomitant]
  5. TOPROL-XL [Concomitant]
  6. NEURONTIN (GABAPENTIN PFIZER) [Concomitant]
  7. METHOTREXATE [Concomitant]
  8. FOLIC ACID [Concomitant]

REACTIONS (5)
  - DIZZINESS [None]
  - FEELING ABNORMAL [None]
  - HERPES ZOSTER [None]
  - NAUSEA [None]
  - WEIGHT DECREASED [None]
